FAERS Safety Report 19879841 (Version 1)
Quarter: 2021Q3

REPORT INFORMATION
  Report Type: Report from Study
  Country: MY (occurrence: MY)
  Receive Date: 20210924
  Receipt Date: 20210924
  Transmission Date: 20211014
  Serious: Yes (Other)
  Sender: FDA-Public Use
  Company Number: MY-TAKEDA-2021TUS059196

PATIENT
  Sex: Male

DRUGS (5)
  1. AZATHIOPRINE. [Concomitant]
     Active Substance: AZATHIOPRINE
     Dosage: 100 MILLIGRAM, QD
  2. VEDOLIZUMAB [Suspect]
     Active Substance: VEDOLIZUMAB
     Indication: CROHN^S DISEASE
     Dosage: 300 MILLIGRAM
     Route: 042
     Dates: start: 20210203
  3. ROCALTROL [Concomitant]
     Active Substance: CALCITRIOL
     Dosage: 0.25 MICROGRAM, QD
  4. CALCIUM CARBONATE. [Concomitant]
     Active Substance: CALCIUM CARBONATE
     Dosage: 500 MILLIGRAM, QD
  5. ZINCOFER [Concomitant]
     Dosage: UNK UNK, QD

REACTIONS (3)
  - Anaemia [Unknown]
  - Colitis ulcerative [Unknown]
  - Large intestinal stenosis [Unknown]
